FAERS Safety Report 4623447-7 (Version None)
Quarter: 2005Q1

REPORT INFORMATION
  Report Type: 
  Country: None (occurrence: None)
  Receive Date: 20050330
  Receipt Date: 20050316
  Transmission Date: 20050727
  Serious: Yes (Other)
  Sender: FDA-Public Use
  Company Number: 2005042524

PATIENT
  Age: 21 Year
  Sex: Female

DRUGS (2)
  1. LITHIUM CARBONATE [Suspect]
     Indication: NEUROLEPTIC MALIGNANT SYNDROME
     Dosage: 900 MG, ORAL
     Route: 048
  2. HALOPERIDOL [Suspect]
     Indication: MANIA

REACTIONS (3)
  - NEUROLEPTIC MALIGNANT SYNDROME [None]
  - RETROPLACENTAL HAEMATOMA [None]
  - UNINTENDED PREGNANCY [None]
